FAERS Safety Report 7407608-X (Version None)
Quarter: 2011Q2

REPORT INFORMATION
  Report Type: 
  Country: None (occurrence: None)
  Receive Date: 20110405
  Receipt Date: 20110321
  Transmission Date: 20111010
  Serious: Yes (Other)
  Sender: FDA-Public Use
  Company Number: 2011AP000369

PATIENT
  Age: 132 Month
  Sex: Male
  Weight: 24.8 kg

DRUGS (3)
  1. LORATADINE [Concomitant]
  2. MONTELUKAST [Concomitant]
  3. FLUTICASONE PROPIONATE [Suspect]
     Indication: ASTHMA
     Dosage: 88 ?G; BID;, 220 ?G; BID;

REACTIONS (3)
  - GROWTH RETARDATION [None]
  - CUSHING'S SYNDROME [None]
  - ADRENAL INSUFFICIENCY [None]
